FAERS Safety Report 8190600-8 (Version None)
Quarter: 2012Q1

REPORT INFORMATION
  Report Type: 
  Country: None (occurrence: None)
  Receive Date: 20120305
  Receipt Date: 20120217
  Transmission Date: 20120608
  Serious: Yes (Hospitalization)
  Sender: FDA-Public Use
  Company Number: SAM_00041_2012

PATIENT
  Age: 19 Year
  Sex: Female

DRUGS (1)
  1. METFORMIN HCL [Suspect]
     Indication: PRODUCT USED FOR UNKNOWN INDICATION
     Dosage: 12.5 G 1X, NOT RECOMMENDED DOSE (25 TABLETS)  ORAL
     Route: 048

REACTIONS (10)
  - SUICIDAL IDEATION [None]
  - OVERDOSE [None]
  - VOMITING [None]
  - NAUSEA [None]
  - ABDOMINAL PAIN [None]
  - RENAL FAILURE ACUTE [None]
  - METABOLIC ACIDOSIS [None]
  - ANION GAP INCREASED [None]
  - RESPIRATORY RATE INCREASED [None]
  - HAEMODYNAMIC INSTABILITY [None]
